FAERS Safety Report 5640049-4 (Version None)
Quarter: 2008Q1

REPORT INFORMATION
  Report Type: 
  Country: None (occurrence: None)
  Receive Date: 20080227
  Receipt Date: 20080207
  Transmission Date: 20080703
  Serious: No
  Sender: FDA-Public Use
  Company Number: US-BAYER-200813769NA

PATIENT
  Age: 21 Year
  Sex: Female
  Weight: 52 kg

DRUGS (2)
  1. YAZ [Suspect]
     Indication: ORAL CONTRACEPTION
     Route: 048
     Dates: start: 20071201
  2. AZITHROMYCIN [Concomitant]
     Indication: INFLUENZA
     Dates: start: 20080203, end: 20080208

REACTIONS (3)
  - COUGH [None]
  - INFLUENZA [None]
  - PHARYNGOLARYNGEAL PAIN [None]
